FAERS Safety Report 10681364 (Version 3)
Quarter: 2015Q1

REPORT INFORMATION
  Report Type: Spontaneous
  Country: US (occurrence: US)
  Receive Date: 20141230
  Receipt Date: 20150317
  Transmission Date: 20150720
  Serious: Yes (Hospitalization, Other)
  Sender: FDA-Public Use
  Company Number: US-JNJFOC-20141214714

PATIENT
  Age: 34 Year
  Sex: Male
  Weight: 72.58 kg

DRUGS (4)
  1. TYLENOL REGULAR STRENGTH [Suspect]
     Active Substance: ACETAMINOPHEN
     Indication: PAIN
     Dosage: DOSAGE: 2-3 DOSES OF 325 MG 2-3 TIMES A DAY (APPROXIMATELY 2500 MG/DAY)
     Route: 048
     Dates: start: 20130207, end: 20130218
  2. TYLENOL EXTRA STRENGTH [Suspect]
     Active Substance: ACETAMINOPHEN
     Indication: HEADACHE
     Dosage: DOSAGE: 2 DOSES OF 500 MG OR 650 MG 1-2 TIMES A DAY (APPROXIMATELY 1500 MG/DAY)
     Route: 048
     Dates: start: 201302, end: 20130218
  3. TYLENOL EXTRA STRENGTH [Suspect]
     Active Substance: ACETAMINOPHEN
     Indication: PAIN
     Dosage: DOSAGE: 2 DOSES OF 500 MG OR 650 MG 1-2 TIMES A DAY (APPROXIMATELY 1500 MG/DAY)
     Route: 048
     Dates: start: 201302, end: 20130218
  4. RANITIDINE [Concomitant]
     Active Substance: RANITIDINE\RANITIDINE HYDROCHLORIDE
     Indication: GASTROOESOPHAGEAL REFLUX DISEASE
     Route: 065
     Dates: start: 2011

REACTIONS (3)
  - Toxicity to various agents [Unknown]
  - Urinary tract infection [None]
  - Acute hepatic failure [Recovering/Resolving]

NARRATIVE: CASE EVENT DATE: 201302
